FAERS Safety Report 16593768 (Version 1)
Quarter: 2019Q3

REPORT INFORMATION
  Report Type: Spontaneous
  Country: US (occurrence: US)
  Receive Date: 20190718
  Receipt Date: 20190718
  Transmission Date: 20191004
  Serious: No
  Sender: FDA-Public Use
  Company Number: US-SWEDISH ORPHAN BIOVITRUM-2018US1262

PATIENT
  Sex: Male

DRUGS (2)
  1. KINERET [Suspect]
     Active Substance: ANAKINRA
     Indication: ARTHRALGIA
  2. KINERET [Suspect]
     Active Substance: ANAKINRA
     Indication: RASH
     Route: 058

REACTIONS (8)
  - Hypersensitivity [Unknown]
  - Pyrexia [Unknown]
  - Injection site pain [Unknown]
  - Abdominal distension [Unknown]
  - Injection site induration [Unknown]
  - Bedridden [Unknown]
  - Injection site erythema [Unknown]
  - Abdominal pain [Unknown]
